FAERS Safety Report 22313651 (Version 1)
Quarter: 2023Q2

REPORT INFORMATION
  Report Type: Report from Study
  Country: US (occurrence: US)
  Receive Date: 20230512
  Receipt Date: 20230512
  Transmission Date: 20230721
  Serious: Yes (Hospitalization)
  Sender: FDA-Public Use
  Company Number: US-JNJFOC-20230509561

PATIENT
  Age: 51 Year
  Sex: Female

DRUGS (2)
  1. SPRAVATO [Suspect]
     Active Substance: ESKETAMINE
     Indication: Depression
     Dosage: ^56 MG, 2 TOTAL DOSES^
     Dates: start: 20220310, end: 20220317
  2. SPRAVATO [Suspect]
     Active Substance: ESKETAMINE
     Dosage: ^84 MG, 7 TOTAL DOSES^
     Dates: start: 20220325, end: 20230223

REACTIONS (1)
  - Post-acute COVID-19 syndrome [Not Recovered/Not Resolved]

NARRATIVE: CASE EVENT DATE: 20230401
